FAERS Safety Report 16323608 (Version 3)
Quarter: 2019Q2

REPORT INFORMATION
  Report Type: Spontaneous
  Country: DE (occurrence: DE)
  Receive Date: 20190517
  Receipt Date: 20190612
  Transmission Date: 20190711
  Serious: Yes (Death, Hospitalization)
  Sender: FDA-Public Use
  Company Number: DE-ROCHE-2317673

PATIENT
  Age: 75 Year
  Sex: Male

DRUGS (4)
  1. ESOMEPRAZOLE. [Interacting]
     Active Substance: ESOMEPRAZOLE MAGNESIUM
     Indication: GASTROOESOPHAGEAL REFLUX DISEASE
     Route: 065
  2. PIRFENIDONE. [Interacting]
     Active Substance: PIRFENIDONE
     Indication: IDIOPATHIC PULMONARY FIBROSIS
     Dosage: WEEK 2
     Route: 065
  3. PIRFENIDONE. [Interacting]
     Active Substance: PIRFENIDONE
     Indication: IDIOPATHIC PULMONARY FIBROSIS
     Dosage: WEEK 3
     Route: 065
  4. PIRFENIDONE. [Suspect]
     Active Substance: PIRFENIDONE
     Indication: IDIOPATHIC PULMONARY FIBROSIS
     Dosage: WEEK 1
     Route: 065

REACTIONS (8)
  - Lactic acidosis [Fatal]
  - Pruritus [Unknown]
  - Multiple organ dysfunction syndrome [Fatal]
  - Acute hepatic failure [Unknown]
  - Drug interaction [Unknown]
  - Escherichia sepsis [Fatal]
  - Drug-induced liver injury [Unknown]
  - Photophobia [Unknown]
